FAERS Safety Report 15201462 (Version 1)
Quarter: 2018Q3

REPORT INFORMATION
  Report Type: Spontaneous
  Country: IT (occurrence: IT)
  Receive Date: 20180726
  Receipt Date: 20180726
  Transmission Date: 20181010
  Serious: Yes (Hospitalization)
  Sender: FDA-Public Use
  Company Number: IT-ACCORD-070027

PATIENT
  Age: 72 Year
  Sex: Female

DRUGS (3)
  1. XELODA [Suspect]
     Active Substance: CAPECITABINE
     Indication: HER-2 POSITIVE GASTRIC CANCER
     Dosage: DATE OF MOST RECENT DOSE OF CAPECITABINE 3500 MG PRIOR TO SERIOUS ADVERSE EVENT: 07/SEP/2017
     Route: 048
     Dates: start: 20170717
  2. HERCEPTIN [Suspect]
     Active Substance: TRASTUZUMAB
     Indication: HER-2 POSITIVE GASTRIC CANCER
     Dosage: DATE OF MOST RECENT DOSE OF  TRASTUZUMAB 396 MG PRIOR TO SERIOUS ADVERSE EVENT: 01/SEP/2017
     Route: 042
     Dates: start: 20170717
  3. CISPLATIN. [Suspect]
     Active Substance: CISPLATIN
     Indication: HER-2 POSITIVE GASTRIC CANCER
     Dosage: DATE OF MOST RECENT DOSE OF CISPLATIN 71 MG PRIOR TO SERIOUS ADVERSE EVENT: 01/SEP/2017
     Route: 042
     Dates: start: 20170717

REACTIONS (3)
  - Off label use [Unknown]
  - Hyponatraemia [Recovered/Resolved]
  - Cystitis haemorrhagic [Unknown]

NARRATIVE: CASE EVENT DATE: 20170908
